FAERS Safety Report 20718309 (Version 1)
Quarter: 2022Q2

REPORT INFORMATION
  Report Type: Spontaneous
  Country: US (occurrence: US)
  Receive Date: 20220418
  Receipt Date: 20220418
  Transmission Date: 20220721
  Serious: Yes (Other)
  Sender: FDA-Public Use
  Company Number: US-UROGEN PHARMA LTD.-2022-UGN-000026

PATIENT

DRUGS (5)
  1. JELMYTO [Suspect]
     Active Substance: MITOMYCIN
     Indication: Transitional cell cancer of the renal pelvis and ureter
     Dosage: UNK, ONCE A WEEK  (INSTILLATION)
     Dates: start: 20220126, end: 20220126
  2. JELMYTO [Suspect]
     Active Substance: MITOMYCIN
     Dosage: UNK, ONCE A WEEK  (INSTILLATION)
     Dates: start: 20220202, end: 20220202
  3. JELMYTO [Suspect]
     Active Substance: MITOMYCIN
     Dosage: UNK, ONCE A WEEK  (INSTILLATION)
     Dates: start: 20220209, end: 20220209
  4. JELMYTO [Suspect]
     Active Substance: MITOMYCIN
     Dosage: UNK, ONCE A WEEK  (INSTILLATION)
     Dates: start: 20220223, end: 20220223
  5. JELMYTO [Suspect]
     Active Substance: MITOMYCIN
     Dosage: UNK, ONCE A WEEK  (INSTILLATION)
     Dates: start: 20220302, end: 20220302

REACTIONS (1)
  - Ureteric haemorrhage [Unknown]

NARRATIVE: CASE EVENT DATE: 20220101
